FAERS Safety Report 6324553-1 (Version None)
Quarter: 2009Q3

REPORT INFORMATION
  Report Type: 
  Country: None (occurrence: None)
  Receive Date: 20090824
  Receipt Date: 20090819
  Transmission Date: 20100115
  Serious: Yes (Other)
  Sender: FDA-Public Use
  Company Number: DE-AVENTIS-200912115DE

PATIENT
  Age: 64 Year
  Sex: Male

DRUGS (3)
  1. ARAVA [Suspect]
     Route: 048
     Dates: start: 20010101, end: 20090101
  2. ARAVA [Suspect]
     Route: 048
     Dates: start: 20090101
  3. CORTISON [Concomitant]
     Dosage: DOSE: NOT REPORTED

REACTIONS (1)
  - PANCREATIC CARCINOMA RESECTABLE [None]
